FAERS Safety Report 26211658 (Version 1)
Quarter: 2025Q4

REPORT INFORMATION
  Report Type: Spontaneous
  Country: EU (occurrence: EU)
  Receive Date: 20251230
  Receipt Date: 20251230
  Transmission Date: 20260118
  Serious: Yes (Hospitalization)
  Sender: AMGEN
  Company Number: EU-GLAXOSMITHKLINE-DE2021GSK093429

PATIENT
  Age: 62 Year
  Sex: Female
  Weight: 72 kg

DRUGS (35)
  1. BEVACIZUMAB [Suspect]
     Active Substance: BEVACIZUMAB
     Indication: Ovarian cancer
     Dosage: 498 MG
     Route: 040
     Dates: start: 20200102
  2. BEVACIZUMAB [Suspect]
     Active Substance: BEVACIZUMAB
     Dosage: 501 MG
     Route: 040
     Dates: start: 20200122
  3. BEVACIZUMAB [Suspect]
     Active Substance: BEVACIZUMAB
     Dosage: 505.5 MG
     Route: 040
     Dates: start: 20200212
  4. BEVACIZUMAB [Suspect]
     Active Substance: BEVACIZUMAB
     Dosage: 497.25 MG
     Route: 040
     Dates: start: 20200311
  5. BEVACIZUMAB [Suspect]
     Active Substance: BEVACIZUMAB
     Dosage: 485 MG
     Route: 040
     Dates: start: 20200401
  6. BEVACIZUMAB [Suspect]
     Active Substance: BEVACIZUMAB
     Dosage: 497 MG
     Route: 040
     Dates: start: 20200422
  7. BEVACIZUMAB [Suspect]
     Active Substance: BEVACIZUMAB
     Dosage: 495 MG
     Route: 040
     Dates: start: 20200513
  8. BEVACIZUMAB [Suspect]
     Active Substance: BEVACIZUMAB
     Dosage: 509 MG
     Route: 040
     Dates: start: 20200603
  9. BEVACIZUMAB [Suspect]
     Active Substance: BEVACIZUMAB
     Dosage: 516.75 MG
     Route: 040
     Dates: start: 20200624
  10. BEVACIZUMAB [Suspect]
     Active Substance: BEVACIZUMAB
     Dosage: 519 MG
     Route: 040
     Dates: start: 20200715
  11. BEVACIZUMAB [Suspect]
     Active Substance: BEVACIZUMAB
     Dosage: 520 MG
     Route: 040
     Dates: start: 20200805
  12. BEVACIZUMAB [Suspect]
     Active Substance: BEVACIZUMAB
     Dosage: 517 MG
     Route: 040
     Dates: start: 20200826
  13. BEVACIZUMAB [Suspect]
     Active Substance: BEVACIZUMAB
     Dosage: 523 MG
     Route: 040
     Dates: start: 20201007
  14. BEVACIZUMAB [Suspect]
     Active Substance: BEVACIZUMAB
     Dosage: 524 MG
     Route: 040
     Dates: start: 20201028
  15. BEVACIZUMAB [Suspect]
     Active Substance: BEVACIZUMAB
     Dosage: 530 MG
     Route: 040
     Dates: start: 20201118
  16. BEVACIZUMAB [Suspect]
     Active Substance: BEVACIZUMAB
     Dosage: 537 MG
     Route: 040
     Dates: start: 20210120
  17. NIRAPARIB [Suspect]
     Active Substance: NIRAPARIB
     Indication: Ovarian cancer
     Dosage: UNK
     Route: 065
     Dates: start: 20200212
  18. DOSTARLIMAB [Suspect]
     Active Substance: DOSTARLIMAB
     Indication: Ovarian cancer
     Dosage: UNK
     Route: 065
     Dates: start: 20190918
  19. DOSTARLIMAB [Suspect]
     Active Substance: DOSTARLIMAB
     Dosage: UNK
     Route: 065
     Dates: start: 20200212
  20. CARBOPLATIN [Suspect]
     Active Substance: CARBOPLATIN
     Indication: Ovarian cancer
     Dosage: 550 MG
     Route: 040
     Dates: start: 20190828
  21. CARBOPLATIN [Suspect]
     Active Substance: CARBOPLATIN
     Dosage: 688 MG
     Route: 040
     Dates: start: 20190918
  22. CARBOPLATIN [Suspect]
     Active Substance: CARBOPLATIN
     Dosage: 584 MG
     Route: 040
     Dates: start: 20191009
  23. CARBOPLATIN [Suspect]
     Active Substance: CARBOPLATIN
     Dosage: 670 MG
     Route: 040
     Dates: start: 20191011
  24. CARBOPLATIN [Suspect]
     Active Substance: CARBOPLATIN
     Dosage: 574.5 MG
     Route: 040
     Dates: start: 20200102
  25. CARBOPLATIN [Suspect]
     Active Substance: CARBOPLATIN
     Dosage: 598 MG
     Route: 040
     Dates: start: 20200122
  26. PACLITAXEL [Suspect]
     Active Substance: PACLITAXEL
     Indication: Ovarian cancer
     Dosage: 312 MG
     Route: 040
     Dates: start: 20190828
  27. PACLITAXEL [Suspect]
     Active Substance: PACLITAXEL
     Dosage: 309 MG
     Route: 040
     Dates: start: 20190918
  28. PACLITAXEL [Suspect]
     Active Substance: PACLITAXEL
     Dosage: 306 MG
     Route: 040
     Dates: start: 20191009
  29. PACLITAXEL [Suspect]
     Active Substance: PACLITAXEL
     Dosage: 301 MG
     Route: 040
     Dates: start: 20191211
  30. PICOPREP [Concomitant]
     Active Substance: ANHYDROUS CITRIC ACID\MAGNESIUM OXIDE\SODIUM PICOSULFATE
     Indication: Constipation
     Dosage: 1 DF (OTHER), QD
     Route: 048
     Dates: start: 20210422, end: 20210422
  31. COVID-19 vaccine [Concomitant]
     Indication: COVID-19 immunisation
     Dosage: UNK, QD
     Route: 030
     Dates: start: 20210415, end: 20210415
  32. ACETAMINOPHEN [Concomitant]
     Active Substance: ACETAMINOPHEN
     Indication: Pyrexia
     Dosage: 500 MG, PRN
     Route: 048
     Dates: start: 20210423
  33. IBU [Concomitant]
     Active Substance: IBUPROFEN
     Indication: Abdominal pain
     Dosage: 600 MG, PRN
     Route: 048
     Dates: start: 20210424, end: 20210426
  34. IBU [Concomitant]
     Active Substance: IBUPROFEN
     Indication: Pyrexia
  35. LEVOFLOXACIN [Concomitant]
     Active Substance: LEVOFLOXACIN
     Indication: Pyrexia
     Dosage: 500 MG, BID
     Route: 048
     Dates: start: 20210423, end: 20210426

REACTIONS (1)
  - Appendiceal abscess [Recovered/Resolved]

NARRATIVE: CASE EVENT DATE: 20210426
